FAERS Safety Report 7557921-0 (Version None)
Quarter: 2011Q2

REPORT INFORMATION
  Report Type: 
  Country: None (occurrence: None)
  Receive Date: 20110620
  Receipt Date: 20110610
  Transmission Date: 20111010
  Serious: Yes (Hospitalization)
  Sender: FDA-Public Use
  Company Number: B0602546A

PATIENT
  Sex: Female
  Weight: 41 kg

DRUGS (16)
  1. PACLITAXEL [Suspect]
     Indication: BREAST CANCER
     Route: 042
     Dates: start: 20090604, end: 20091022
  2. REBAMIPIDE [Concomitant]
     Indication: GASTRITIS PROPHYLAXIS
     Route: 048
     Dates: start: 20090522
  3. GLYCINE 1.5% [Concomitant]
     Indication: RASH
     Route: 065
     Dates: start: 20090716
  4. HYDROCORTISONE [Concomitant]
     Route: 061
     Dates: start: 20090813
  5. LOXOPROFEN SODIUM [Concomitant]
     Indication: PAIN
     Route: 065
     Dates: start: 20090522
  6. GRANISETRON HCL [Concomitant]
     Indication: PREMEDICATION
     Route: 065
     Dates: start: 20090604
  7. MONOAMMONIUM GLYCYRRHIZINATE [Concomitant]
     Indication: RASH
     Route: 065
     Dates: start: 20090716
  8. DEXAMETHASONE SODIUM PHOSPHATE [Concomitant]
     Indication: PREMEDICATION
     Route: 065
     Dates: start: 20090604
  9. L-CYSTEINE [Concomitant]
     Indication: RASH
     Route: 061
     Dates: start: 20090716
  10. ESCHERICHIA COLI [Concomitant]
     Dates: start: 20090813
  11. UNKNOWN DRUG [Concomitant]
     Indication: RASH
     Route: 061
     Dates: start: 20090716
  12. ZOLEDRONIC ACID [Concomitant]
     Route: 065
     Dates: start: 20090604
  13. BETAMETHASONE VALERATE [Concomitant]
     Indication: RASH
     Route: 061
     Dates: start: 20090702
  14. TYKERB [Suspect]
     Indication: BREAST CANCER
     Route: 048
     Dates: start: 20090604
  15. RANITIDINE HYDROCHLORIDE [Concomitant]
     Indication: PREMEDICATION
     Route: 065
     Dates: start: 20090604
  16. DIPHENHYDRAMINE HYDROCHLORIDE [Concomitant]
     Indication: PREMEDICATION
     Route: 065
     Dates: start: 20090604

REACTIONS (4)
  - CHOLANGITIS [None]
  - DECREASED APPETITE [None]
  - FATIGUE [None]
  - LIVER ABSCESS [None]
